FAERS Safety Report 9874976 (Version 1)
Quarter: 2014Q1

REPORT INFORMATION
  Report Type: Spontaneous
  Country: US (occurrence: US)
  Receive Date: 20140206
  Receipt Date: 20140206
  Transmission Date: 20141002
  Serious: Yes (Death)
  Sender: FDA-Public Use
  Company Number: CHPA2014US001770

PATIENT
  Age: 71 Year
  Sex: Male

DRUGS (5)
  1. IBUPROFEN [Suspect]
     Dosage: UNK
     Route: 048
  2. AMLODIPINE [Suspect]
     Dosage: UNK
     Route: 048
  3. NORTRIPTYLINE [Suspect]
     Dosage: UNK
     Route: 048
  4. ETHANOL [Suspect]
     Dosage: UNK
     Route: 048
  5. BENAZEPRIL [Suspect]
     Dosage: UNK
     Route: 048

REACTIONS (1)
  - Completed suicide [Fatal]
